FAERS Safety Report 22369280 (Version 1)
Quarter: 2023Q2

REPORT INFORMATION
  Report Type: Spontaneous
  Country: US (occurrence: US)
  Receive Date: 20230526
  Receipt Date: 20230526
  Transmission Date: 20230721
  Serious: Yes (Hospitalization, Other)
  Sender: FDA-Public Use
  Company Number: US-STRIDES ARCOLAB LIMITED-2023SP007681

PATIENT
  Age: 5 Year
  Sex: Female

DRUGS (5)
  1. ETOPOSIDE [Suspect]
     Active Substance: ETOPOSIDE
     Indication: Haemophagocytic lymphohistiocytosis
     Dosage: 150 MILLIGRAM/SQ. METER, 2 TIMES A WEEK
     Route: 065
  2. ETOPOSIDE [Suspect]
     Active Substance: ETOPOSIDE
     Dosage: 150 MILLIGRAM/SQ. METER, ONCE A WEEK
     Route: 065
  3. DEXAMETHASONE [Suspect]
     Active Substance: DEXAMETHASONE
     Indication: Haemophagocytic lymphohistiocytosis
     Dosage: 5 MILLIGRAM/SQ. METER, BID
     Route: 065
  4. DEXAMETHASONE [Suspect]
     Active Substance: DEXAMETHASONE
     Dosage: 2.5 MILLIGRAM/SQ. METER/DAY
     Route: 065
  5. DEXAMETHASONE [Suspect]
     Active Substance: DEXAMETHASONE
     Dosage: UNK (GRADUALLY REDUCED)
     Route: 065

REACTIONS (7)
  - Rebound effect [Recovered/Resolved]
  - Myopathy [Unknown]
  - Hyperglycaemia [Unknown]
  - Weight increased [Unknown]
  - Cushing^s syndrome [Unknown]
  - Candida infection [Unknown]
  - Off label use [Unknown]
